FAERS Safety Report 8606108 (Version 5)
Quarter: 2013Q1

REPORT INFORMATION
  Report Type: Spontaneous
  Country: US (occurrence: US)
  Receive Date: 20120608
  Receipt Date: 20130208
  Transmission Date: 20140127
  Serious: No
  Sender: FDA-Public Use
  Company Number: US-ASTRAZENECA-2012SE36780

PATIENT
  Age: 72 Year
  Sex: Female

DRUGS (2)
  1. NEXIUM [Suspect]
     Route: 048
  2. NESACAINE [Suspect]
     Route: 065

REACTIONS (3)
  - Barrett^s oesophagus [Unknown]
  - Anxiety [Unknown]
  - Therapeutic response unexpected [Unknown]
